FAERS Safety Report 11661649 (Version 3)
Quarter: 2015Q4

REPORT INFORMATION
  Report Type: Spontaneous
  Country: US (occurrence: US)
  Receive Date: 20151026
  Receipt Date: 20151102
  Transmission Date: 20160304
  Serious: Yes (Hospitalization, Other)
  Sender: FDA-Public Use
  Company Number: US-PFIZER INC-2015355939

PATIENT
  Age: 53 Year
  Sex: Female
  Weight: 61.22 kg

DRUGS (8)
  1. AMBIEN [Concomitant]
     Active Substance: ZOLPIDEM TARTRATE
     Indication: SLEEP DISORDER
     Dosage: 10 MG, 1X/DAY
     Route: 048
  2. GABAPENTIN. [Suspect]
     Active Substance: GABAPENTIN
     Indication: HYPOAESTHESIA
     Dosage: 200 MG, ONCE OR TWICE A DAY
     Route: 048
     Dates: start: 2006
  3. LYRICA [Interacting]
     Active Substance: PREGABALIN
     Indication: HYPOAESTHESIA
     Dosage: 25MG-75MG ONCE OR TWICE A DAY
     Route: 048
     Dates: start: 2006
  4. LYRICA [Interacting]
     Active Substance: PREGABALIN
     Dosage: 50-75MG, DAILY
     Route: 048
     Dates: start: 200901
  5. NEURONTIN [Interacting]
     Active Substance: GABAPENTIN
     Indication: HYPOAESTHESIA
     Dosage: UNK
     Dates: start: 2006
  6. VICODIN [Interacting]
     Active Substance: ACETAMINOPHEN\HYDROCODONE BITARTRATE
     Indication: PAIN
     Dosage: 1-2 HALVES ONCE OR TWICE A DAY
     Dates: start: 2006
  7. LITHIUM. [Concomitant]
     Active Substance: LITHIUM
     Dosage: UNK
     Dates: start: 2009
  8. ATORVASTATIN [Concomitant]
     Active Substance: ATORVASTATIN
     Indication: BLOOD CHOLESTEROL ABNORMAL
     Dosage: UNK

REACTIONS (9)
  - Bipolar disorder [Unknown]
  - Abnormal behaviour [Unknown]
  - Fear [Recovered/Resolved]
  - Product use issue [Unknown]
  - Mania [Recovered/Resolved]
  - Drug interaction [Unknown]
  - Pressure of speech [Recovered/Resolved]
  - Agitation [Recovered/Resolved]
  - Paranoia [Recovered/Resolved]

NARRATIVE: CASE EVENT DATE: 2006
